FAERS Safety Report 22054727 (Version 1)
Quarter: 2023Q1

REPORT INFORMATION
  Report Type: Spontaneous
  Country: US (occurrence: US)
  Receive Date: 20230302
  Receipt Date: 20230302
  Transmission Date: 20230417
  Serious: Yes (Other)
  Sender: FDA-Public Use
  Company Number: US-AMGEN-USASP2023032865

PATIENT
  Sex: Male

DRUGS (2)
  1. REPATHA [Suspect]
     Active Substance: EVOLOCUMAB
     Indication: Hypercholesterolaemia
     Dosage: 140 MILLIGRAM, Q2WK
     Route: 058
     Dates: start: 202212
  2. OPDIVO [Concomitant]
     Active Substance: NIVOLUMAB

REACTIONS (2)
  - Malignant melanoma [Not Recovered/Not Resolved]
  - Pain in extremity [Not Recovered/Not Resolved]
